FAERS Safety Report 17576214 (Version 1)
Quarter: 2020Q1

REPORT INFORMATION
  Report Type: Report from Study
  Country: US (occurrence: US)
  Receive Date: 20200324
  Receipt Date: 20200324
  Transmission Date: 20200409
  Serious: Yes (Hospitalization)
  Sender: FDA-Public Use
  Company Number: US-PFIZER INC-2020119304

PATIENT
  Age: 13 Year
  Sex: Female
  Weight: 38 kg

DRUGS (5)
  1. METHOTREXATE SODIUM. [Suspect]
     Active Substance: METHOTREXATE SODIUM
     Indication: ACUTE LYMPHOCYTIC LEUKAEMIA
     Dosage: 185 MG, IM2 DAYS1, 11, 21, 31
     Route: 042
     Dates: start: 20191217, end: 20200131
  2. METHOTREXATE SODIUM. [Suspect]
     Active Substance: METHOTREXATE SODIUM
     Indication: ACUTE LYMPHOCYTIC LEUKAEMIA
     Dosage: 15 MG, IM2 DAYS 1, 31
     Route: 037
     Dates: start: 20191217, end: 20200131
  3. INCB018424 [Suspect]
     Active Substance: RUXOLITINIB
     Indication: ACUTE LYMPHOCYTIC LEUKAEMIA
     Dosage: 60 MG, 1X/DAY, DAYS 1-10, 21 - 30
     Route: 048
     Dates: start: 20191217, end: 20200131
  4. PEGASPARGASE [Suspect]
     Active Substance: PEGASPARGASE
     Indication: ACUTE LYMPHOCYTIC LEUKAEMIA
     Dosage: 3075 IU, IM2 DAYS 2, 22
     Route: 042
     Dates: start: 20191218, end: 20200111
  5. VINCRISTINE SULFATE. [Suspect]
     Active Substance: VINCRISTINE SULFATE
     Indication: ACUTE LYMPHOCYTIC LEUKAEMIA
     Dosage: 1.85 MG, IM2 DAYS1,11, 21, 31
     Route: 042
     Dates: start: 20191217, end: 20200131

REACTIONS (4)
  - Encephalopathy [Not Recovered/Not Resolved]
  - Bacteraemia [Recovering/Resolving]
  - Encephalitis fungal [Not Recovered/Not Resolved]
  - Neutropenic colitis [Recovering/Resolving]

NARRATIVE: CASE EVENT DATE: 20200126
